FAERS Safety Report 11176960 (Version 11)
Quarter: 2016Q1

REPORT INFORMATION
  Report Type: Report from Study
  Country: DE (occurrence: DE)
  Receive Date: 20150610
  Receipt Date: 20160121
  Transmission Date: 20160525
  Serious: Yes (Hospitalization, Other)
  Sender: FDA-Public Use
  Company Number: DE-ROCHE-1567215

PATIENT
  Age: 75 Year
  Sex: Female
  Weight: 96.2 kg

DRUGS (16)
  1. TRASTUZUMAB [Suspect]
     Active Substance: TRASTUZUMAB
     Route: 058
     Dates: start: 20150803
  2. PACLITAXEL ALBUMIN [Suspect]
     Active Substance: PACLITAXEL
     Indication: BREAST CANCER
     Route: 042
     Dates: start: 20150217, end: 20150408
  3. PACLITAXEL ALBUMIN [Suspect]
     Active Substance: PACLITAXEL
     Route: 042
     Dates: start: 20150224
  4. PACLITAXEL ALBUMIN [Suspect]
     Active Substance: PACLITAXEL
     Route: 042
     Dates: start: 20150324
  5. PACLITAXEL ALBUMIN [Suspect]
     Active Substance: PACLITAXEL
     Route: 042
     Dates: start: 20150317
  6. PROTAPHANE [Concomitant]
     Active Substance: INSULIN HUMAN
     Indication: DIABETES MELLITUS
  7. TRASTUZUMAB [Suspect]
     Active Substance: TRASTUZUMAB
     Route: 058
     Dates: start: 20150310, end: 20150421
  8. METFORMIN [Concomitant]
     Active Substance: METFORMIN HYDROCHLORIDE
     Route: 065
     Dates: end: 201504
  9. ACTRAPID [Concomitant]
     Active Substance: INSULIN HUMAN
     Indication: DIABETES MELLITUS
  10. PACLITAXEL ALBUMIN [Suspect]
     Active Substance: PACLITAXEL
     Route: 042
     Dates: start: 20150303
  11. DEXAMETHASON [Concomitant]
     Active Substance: DEXAMETHASONE
     Indication: PROPHYLAXIS
     Route: 048
     Dates: start: 20150217, end: 20150408
  12. AMLODIPIN [Concomitant]
     Active Substance: AMLODIPINE BESYLATE
     Indication: HYPERTENSION
     Route: 048
  13. XARELTO [Concomitant]
     Active Substance: RIVAROXABAN
     Indication: ATRIAL FIBRILLATION
  14. PACLITAXEL ALBUMIN [Suspect]
     Active Substance: PACLITAXEL
     Route: 042
     Dates: start: 20150331, end: 20150408
  15. TRASTUZUMAB [Suspect]
     Active Substance: TRASTUZUMAB
     Indication: BREAST CANCER
     Route: 058
     Dates: start: 20150217
  16. VALSARTAN COMP [Concomitant]
     Active Substance: HYDROCHLOROTHIAZIDE\VALSARTAN
     Indication: HYPERTENSION
     Dosage: 320/25 MG
     Route: 048

REACTIONS (8)
  - Pulmonary hypertension [Recovering/Resolving]
  - Dry eye [Not Recovered/Not Resolved]
  - Cardiomyopathy [Recovering/Resolving]
  - Atrial fibrillation [Unknown]
  - Nausea [Recovered/Resolved]
  - Ventricular extrasystoles [Recovering/Resolving]
  - Atrial fibrillation [Recovering/Resolving]
  - Right ventricular failure [Recovering/Resolving]

NARRATIVE: CASE EVENT DATE: 20150421
